FAERS Safety Report 18186208 (Version 2)
Quarter: 2020Q3

REPORT INFORMATION
  Report Type: Spontaneous
  Country: CH (occurrence: CH)
  Receive Date: 20200824
  Receipt Date: 20200915
  Transmission Date: 20201103
  Serious: Yes (Hospitalization, Other)
  Sender: FDA-Public Use
  Company Number: CH-PFIZER INC-2020321970

PATIENT
  Age: 54 Year
  Sex: Male
  Weight: 85 kg

DRUGS (18)
  1. CIPRALEX [Suspect]
     Active Substance: ESCITALOPRAM OXALATE
     Indication: PERSONALITY DISORDER
     Dosage: 10 MG, DAILY
  2. TOREM [TORASEMIDE] [Concomitant]
     Active Substance: TORSEMIDE
  3. PANTOZOL [Concomitant]
     Active Substance: PANTOPRAZOLE SODIUM
     Dosage: 40 MG, 1X/DAY (1?0?0?0)
  4. JARDIANCE [Concomitant]
     Active Substance: EMPAGLIFLOZIN
  5. PANTOZOL [Concomitant]
     Active Substance: PANTOPRAZOLE SODIUM
     Dosage: 80 MG, DAILY
  6. TRIATEC [RAMIPRIL] [Concomitant]
     Active Substance: RAMIPRIL
  7. FRAGMIN [Suspect]
     Active Substance: DALTEPARIN SODIUM
     Indication: ANTICOAGULANT THERAPY
     Dosage: 18000 IU, 1X/DAY
     Route: 058
  8. MARCOUMAR [Suspect]
     Active Substance: PHENPROCOUMON
     Indication: MITRAL VALVE REPLACEMENT
     Dosage: UNK
     Route: 048
  9. ATOZET [Concomitant]
     Active Substance: ATORVASTATIN CALCIUM\EZETIMIBE
  10. ZYPREXA [Concomitant]
     Active Substance: OLANZAPINE
  11. PASPERTIN [METOCLOPRAMIDE HYDROCHLORIDE] [Concomitant]
     Active Substance: METOCLOPRAMIDE HYDROCHLORIDE
  12. TRESIBA [Concomitant]
     Active Substance: INSULIN DEGLUDEC
  13. OZEMPIC [Concomitant]
     Active Substance: SEMAGLUTIDE
  14. BILOL [Concomitant]
     Active Substance: BISOPROLOL
  15. KCL HAUSMANN [Concomitant]
  16. LIPANTHYL [Concomitant]
     Active Substance: FENOFIBRATE
  17. ASPIRIN CARDIO [Suspect]
     Active Substance: ASPIRIN
     Indication: MITRAL VALVE REPLACEMENT
     Dosage: 100 MG, 1X/DAY
     Route: 048
  18. NOVORAPID [Concomitant]
     Active Substance: INSULIN ASPART

REACTIONS (2)
  - Haematemesis [Recovered/Resolved]
  - Oesophageal candidiasis [Recovering/Resolving]

NARRATIVE: CASE EVENT DATE: 20200725
